FAERS Safety Report 9256736 (Version 3)
Quarter: 2013Q4

REPORT INFORMATION
  Report Type: Spontaneous
  Country: US (occurrence: US)
  Receive Date: 20130426
  Receipt Date: 20131018
  Transmission Date: 20140711
  Serious: Yes (Hospitalization, Disabling)
  Sender: FDA-Public Use
  Company Number: US-ASTRAZENECA-2013SE27776

PATIENT
  Age: 22807 Day
  Sex: Female
  Weight: 72.6 kg

DRUGS (17)
  1. NEXIUM [Suspect]
     Indication: ULCER
     Dosage: 40 MG ONCE A DAY (SOMETIMES TWICE PER DAY)
     Route: 048
     Dates: start: 1994
  2. NEXIUM [Suspect]
     Indication: GASTROOESOPHAGEAL REFLUX DISEASE
     Dosage: 40 MG ONCE A DAY (SOMETIMES TWICE PER DAY)
     Route: 048
     Dates: start: 1994
  3. NEXIUM [Suspect]
     Indication: ULCER
     Route: 048
     Dates: start: 20080522
  4. NEXIUM [Suspect]
     Indication: GASTROOESOPHAGEAL REFLUX DISEASE
     Route: 048
     Dates: start: 20080522
  5. TUMS [Concomitant]
     Dosage: AS NEEDED
     Dates: start: 1980, end: 1990
  6. ROLAIDS [Concomitant]
     Dosage: AS NEEDED
     Dates: start: 1980, end: 1990
  7. MYLANTA [Concomitant]
     Dosage: AS NEEDED
     Dates: start: 1980, end: 1990
  8. MULTIVITAMINS [Concomitant]
  9. TAMOXIFEN [Concomitant]
     Route: 048
  10. NORVASC [Concomitant]
  11. TIMOLOL [Concomitant]
  12. HYZAAR [Concomitant]
  13. FOSAMAX [Concomitant]
  14. MAGNESIUM OXIDE [Concomitant]
  15. ALENDRONATE [Concomitant]
  16. IBUPROFEN [Concomitant]
     Dates: start: 20120316
  17. AMLODIPINE [Concomitant]
     Dates: start: 20120407

REACTIONS (4)
  - Wrist fracture [Unknown]
  - Osteoporosis [Unknown]
  - Bone disorder [Unknown]
  - Osteoarthritis [Unknown]
